FAERS Safety Report 11515948 (Version 5)
Quarter: 2016Q1

REPORT INFORMATION
  Report Type: Report from Study
  Country: US (occurrence: US)
  Receive Date: 20150916
  Receipt Date: 20160111
  Transmission Date: 20160525
  Serious: No
  Sender: FDA-Public Use
  Company Number: US-AMGEN-USASP2015094847

PATIENT
  Age: 70 Year
  Sex: Female

DRUGS (3)
  1. ENBREL [Suspect]
     Active Substance: ETANERCEPT
     Indication: RHEUMATOID ARTHRITIS
     Dosage: 50 MG, QWK
     Route: 065
     Dates: start: 20150519
  2. ENBREL [Suspect]
     Active Substance: ETANERCEPT
     Dosage: UNK
     Route: 065
  3. ENBREL [Suspect]
     Active Substance: ETANERCEPT
     Dosage: UNK UNK, UNK
     Route: 065

REACTIONS (18)
  - Pain [Unknown]
  - Erythema [Unknown]
  - Injection site reaction [Unknown]
  - Rash pruritic [Not Recovered/Not Resolved]
  - Papule [Unknown]
  - Flushing [Unknown]
  - Pruritus [Unknown]
  - Musculoskeletal pain [Unknown]
  - Sleep disorder [Unknown]
  - Pain in extremity [Unknown]
  - Mass [Unknown]
  - Mobility decreased [Unknown]
  - Nausea [Unknown]
  - Arthralgia [Unknown]
  - Rash macular [Not Recovered/Not Resolved]
  - Malaise [Unknown]
  - Device issue [Unknown]
  - Injection site bruising [Unknown]

NARRATIVE: CASE EVENT DATE: 2015
